FAERS Safety Report 8260246-1 (Version None)
Quarter: 2012Q2

REPORT INFORMATION
  Report Type: 
  Country: None (occurrence: None)
  Receive Date: 20120404
  Receipt Date: 20120323
  Transmission Date: 20120825
  Serious: Yes (Hospitalization)
  Sender: FDA-Public Use
  Company Number: US-GILEAD-2012-0052042

PATIENT
  Sex: Male

DRUGS (8)
  1. COMBIVENT [Concomitant]
     Indication: BRONCHIECTASIS
     Dosage: UNK
  2. HYPERTONIC SALINE SOLUTION [Concomitant]
     Indication: BRONCHIECTASIS
     Dosage: UNK
  3. AZTREONAM [Suspect]
     Indication: BRONCHIECTASIS
     Dosage: 75 MG, TID
     Route: 055
     Dates: start: 20111018, end: 20120306
  4. DUONEB [Concomitant]
  5. ALBUTEROL [Concomitant]
     Indication: DYSPNOEA
     Dosage: UNK
     Dates: start: 20120110
  6. ASPIRIN [Concomitant]
  7. ACETYLCYSTEINE [Concomitant]
  8. ALBUTEROL SULFATE [Concomitant]
     Indication: PULMONARY FUNCTION TEST
     Dosage: UNK
     Dates: start: 20111004

REACTIONS (14)
  - EMPHYSEMA [None]
  - CONDITION AGGRAVATED [None]
  - PNEUMONIA [None]
  - CHEST PAIN [None]
  - HYPOXIA [None]
  - LUNG DISORDER [None]
  - COUGH [None]
  - BRONCHIECTASIS [None]
  - DYSPNOEA [None]
  - SPUTUM INCREASED [None]
  - GAIT DISTURBANCE [None]
  - PULMONARY OEDEMA [None]
  - CHRONIC OBSTRUCTIVE PULMONARY DISEASE [None]
  - DISEASE PROGRESSION [None]
